FAERS Safety Report 8461962-9 (Version None)
Quarter: 2012Q2

REPORT INFORMATION
  Report Type: 
  Country: None (occurrence: None)
  Receive Date: 20120625
  Receipt Date: 20120615
  Transmission Date: 20120825
  Serious: Yes (Hospitalization)
  Sender: FDA-Public Use
  Company Number: US-BAYER-2012-060539

PATIENT
  Age: 23 Year
  Sex: Female
  Weight: 73 kg

DRUGS (5)
  1. YAZ [Suspect]
  2. INFLUENZA VACCINE [Concomitant]
     Dosage: UNK
     Dates: start: 20100928
  3. IBUPROFEN [Concomitant]
  4. DROSPIRENONE AND ETHINYL ESTRADIOL [Suspect]
     Dosage: UNK UNK, QD
     Route: 048
  5. VICODIN [Concomitant]

REACTIONS (2)
  - DEEP VEIN THROMBOSIS [None]
  - PULMONARY EMBOLISM [None]
